FAERS Safety Report 6603289-3 (Version None)
Quarter: 2010Q1

REPORT INFORMATION
  Report Type: 
  Country: None (occurrence: None)
  Receive Date: 20100226
  Receipt Date: 20100218
  Transmission Date: 20100710
  Serious: Yes (Life-Threatening)
  Sender: FDA-Public Use
  Company Number: JP-PFIZER INC-2010023950

PATIENT
  Age: 75 Year
  Sex: Female

DRUGS (3)
  1. AMLODIPINE BESYLATE [Suspect]
  2. HALCION [Concomitant]
  3. DEPAS [Concomitant]

REACTIONS (2)
  - OVERDOSE [None]
  - SHOCK [None]
